FAERS Safety Report 16182277 (Version 2)
Quarter: 2025Q4

REPORT INFORMATION
  Report Type: Spontaneous
  Country: EU (occurrence: EU)
  Receive Date: 20190410
  Receipt Date: 20251031
  Transmission Date: 20260118
  Serious: Yes (Hospitalization, Other)
  Sender: JAZZ
  Company Number: EU-JAZZ-2019-DE-005049

PATIENT
  Age: 20 Year

DRUGS (4)
  1. XYREM [Suspect]
     Active Substance: SODIUM OXYBATE
     Indication: Narcolepsy
     Dosage: 6 GRAM EVERY 24 HOUR
  2. XYREM [Suspect]
     Active Substance: SODIUM OXYBATE
     Dosage: UNK
  3. DEXTROAMPHETAMINE [Suspect]
     Active Substance: DEXTROAMPHETAMINE
     Indication: Narcolepsy
     Dosage: 30 MILLIGRAM EVERY 24 HOUR
  4. DEXTROAMPHETAMINE [Suspect]
     Active Substance: DEXTROAMPHETAMINE
     Dosage: UNK

REACTIONS (4)
  - Burnout syndrome [Recovered/Resolved]
  - Emotional poverty [Recovered/Resolved]
  - Hypnagogic hallucination [Recovered/Resolved]
  - Off label use [Unknown]
